FAERS Safety Report 21496624 (Version 2)
Quarter: 2022Q4

REPORT INFORMATION
  Report Type: Spontaneous
  Country: LU (occurrence: LU)
  Receive Date: 20221022
  Receipt Date: 20221102
  Transmission Date: 20230113
  Serious: Yes (Hospitalization)
  Sender: FDA-Public Use
  Company Number: None

PATIENT
  Age: 48 Year
  Sex: Female
  Weight: 64 kg

DRUGS (8)
  1. FLUOROURACIL [Suspect]
     Active Substance: FLUOROURACIL
     Indication: Colon cancer
     Dosage: BOLUS,3RD COURSE OF CHEMOTHERAPY, UNIT DOSE : 680.32 MG, FREQUENCY TIME : 1 CYCLICAL
     Route: 065
     Dates: start: 20220920, end: 20220920
  2. FLUOROURACIL [Suspect]
     Active Substance: FLUOROURACIL
     Dosage: THEN ADMINISTRATION WITH PUMP 3RD COURSE OF CHEMOTHERAPY, UNIT DOSE : 4081.9 MG,FREQUENCY TIME : 1 C
     Route: 065
     Dates: start: 20220920, end: 20220920
  3. OXALIPLATIN [Suspect]
     Active Substance: OXALIPLATIN
     Indication: Colon cancer
     Dosage: UNIT DOSE : 144.57 MG, 3RD COURSE OF CHEMOTHERAPY, FREQUENCY TIME : 1 CYCLICAL
     Route: 065
     Dates: start: 20220920, end: 20220920
  4. LEUCOVORIN [Suspect]
     Active Substance: LEUCOVORIN
     Indication: Colon cancer
     Dosage: 3RD COURSE OF CHEMOTHERAPY,UNIT DOSE : 680.32 MG, FREQUENCY TIME : 1 CYCLICAL
     Route: 065
     Dates: start: 20220920, end: 20220920
  5. VECTIBIX [Suspect]
     Active Substance: PANITUMUMAB
     Indication: Colon cancer
     Dosage: 3RD COURSE OF CHEMOTHERAPY,UNIT DOSE : 376.81 MG, FREQUENCY TIME : 1 CYCLICAL
     Route: 065
     Dates: start: 20220920, end: 20220920
  6. DEXAMETHASONE [Concomitant]
     Active Substance: DEXAMETHASONE
     Indication: Premedication
     Dosage: 30 MINUTES BEFORE CHIMIOTHERAPY, UNIT DOSE AND STRENGTH  : 8 MG, FREQUENCY TIME : 1 TOTAL, THERAPY D
     Dates: start: 20220920, end: 20220920
  7. DEXCHLORPHENIRAMINE [Concomitant]
     Active Substance: DEXCHLORPHENIRAMINE
     Indication: Premedication
     Dosage: 30 MINUTES BEFORE CHIMIOTHERAPY, UNIT DOSE AND STRENGTH  : 5 MG, FREQUENCY TIME : 1 TOTAL, THERAPY D
     Dates: start: 20220920, end: 20220920
  8. ONDANSETRON [Concomitant]
     Active Substance: ONDANSETRON
     Indication: Premedication
     Dosage: 30 MINUTES BEFORE CHIMIOTHERAPY, UNIT DOSE AND STRENGTH  : 8 MG,FREQUENCY TIME : 1 TOTAL, THERAPY DU
     Dates: start: 20220920, end: 20220920

REACTIONS (2)
  - Stridor [Recovering/Resolving]
  - Dyspnoea [Recovering/Resolving]

NARRATIVE: CASE EVENT DATE: 20220920
